FAERS Safety Report 10768776 (Version 3)
Quarter: 2015Q2

REPORT INFORMATION
  Report Type: Spontaneous
  Country: US (occurrence: US)
  Receive Date: 20150206
  Receipt Date: 20150414
  Transmission Date: 20150821
  Serious: No
  Sender: FDA-Public Use
  Company Number: US-PFIZER INC-2015048683

PATIENT
  Age: 72 Year
  Sex: Female

DRUGS (1)
  1. PREMPRO [Suspect]
     Active Substance: ESTROGENS, CONJUGATED\MEDROXYPROGESTERONE ACETATE
     Dosage: 1 DF, 1X/DAY (0.3 MG -1.5 MG TABLET 1 ONCE A DAY)
     Dates: start: 1992

REACTIONS (5)
  - Bone pain [Unknown]
  - Lethargy [Unknown]
  - Arthralgia [Unknown]
  - Depressed mood [Unknown]
  - Pain [Unknown]
